FAERS Safety Report 4698655-X (Version None)
Quarter: 2005Q2

REPORT INFORMATION
  Report Type: 
  Country: None (occurrence: None)
  Receive Date: 20050622
  Receipt Date: 20050610
  Transmission Date: 20051028
  Serious: Yes (Hospitalization, Other)
  Sender: FDA-Public Use
  Company Number: KII-2005-0016967

PATIENT
  Age: 35 Year
  Sex: Male

DRUGS (8)
  1. OXYCONTIN [Suspect]
     Indication: PAIN
     Dosage: ORAL
     Route: 048
  2. ACETAMINOPHEN AND OXYCODONE HCL [Suspect]
     Indication: HEADACHE
     Dosage: ORAL
     Route: 048
  3. ACETAMINOPHEN AND HYDROCODONE BITARTRATE [Suspect]
     Indication: HEADACHE
     Dosage: ORAL
     Route: 048
  4. WARFARIN SODIUM [Suspect]
  5. OTHER HYPNOTICS AND SEDATIVES [Suspect]
  6. FOSINOPRIL SODIUM [Suspect]
  7. BENZODIAZEPINE DERIVATIVES [Suspect]
  8. TOPAMAX [Suspect]

REACTIONS (10)
  - AGGRESSION [None]
  - ANION GAP INCREASED [None]
  - BLOOD POTASSIUM DECREASED [None]
  - COAGULATION TIME PROLONGED [None]
  - COMA [None]
  - LETHARGY [None]
  - MULTIPLE DRUG OVERDOSE [None]
  - OXYGEN SATURATION DECREASED [None]
  - PO2 DECREASED [None]
  - SOMNOLENCE [None]
